FAERS Safety Report 4372326-1 (Version None)
Quarter: 2004Q2

REPORT INFORMATION
  Report Type: 
  Country: None (occurrence: None)
  Receive Date: 20040602
  Receipt Date: 20040525
  Transmission Date: 20050107
  Serious: Yes (Hospitalization, Other)
  Sender: FDA-Public Use
  Company Number: 2004215206AT

PATIENT
  Age: 55 Year
  Sex: Male
  Weight: 61 kg

DRUGS (1)
  1. FRAGMIN [Suspect]
     Indication: THROMBOSIS PROPHYLAXIS
     Dates: start: 20030601, end: 20030601

REACTIONS (7)
  - ANASTOMOTIC HAEMORRHAGE [None]
  - HAEMATOMA [None]
  - HAEMORRHAGE [None]
  - OPERATIVE HAEMORRHAGE [None]
  - PERITONITIS [None]
  - POST PROCEDURAL HAEMORRHAGE [None]
  - VON WILLEBRAND'S DISEASE [None]
